FAERS Safety Report 8259301-1 (Version None)
Quarter: 2012Q2

REPORT INFORMATION
  Report Type: 
  Country: None (occurrence: None)
  Receive Date: 20120404
  Receipt Date: 20110901
  Transmission Date: 20120825
  Serious: Yes (Hospitalization)
  Sender: FDA-Public Use
  Company Number: US-TYCO HEALTHCARE/MALLINCKRODT-T201101152

PATIENT
  Sex: Female
  Weight: 54.422 kg

DRUGS (7)
  1. FENTANYL-100 [Suspect]
     Indication: PAIN IN EXTREMITY
     Dosage: 25 UG/HR PATCH APPLIED - FELL OFF DURING THE DAY
     Route: 062
     Dates: start: 20110527, end: 20110527
  2. BACLOFEN [Concomitant]
     Indication: MUSCLE RELAXANT THERAPY
     Dosage: UNK
  3. XANAX [Concomitant]
     Indication: PANIC DISORDER
     Dosage: UNK
  4. NORCO [Concomitant]
     Indication: PAIN
     Dosage: 10/325 MG, 2 Q 6 HRS
  5. FENTANYL-100 [Suspect]
     Dosage: 2 - 25 UG/HR PATCHES APPLIED IN THE MORNING
     Dates: start: 20110528, end: 20110528
  6. REMERON [Concomitant]
     Indication: ANTIDEPRESSANT THERAPY
     Dosage: 15 MG, QHS
  7. FENTANYL-100 [Suspect]
     Indication: BACK PAIN
     Dosage: 2ND 25 UG/HR PATCH APPLIED - FELL OFF DURING THE NIGHT
     Dates: start: 20110527, end: 20110527

REACTIONS (2)
  - DRUG INEFFECTIVE [None]
  - APPENDICITIS [None]
